FAERS Safety Report 10842224 (Version 1)
Quarter: 2015Q1

REPORT INFORMATION
  Report Type: Spontaneous
  Country: IT (occurrence: IT)
  Receive Date: 20150220
  Receipt Date: 20150220
  Transmission Date: 20150721
  Serious: Yes (Hospitalization)
  Sender: FDA-Public Use
  Company Number: IT-ACTAVIS-2015-02632

PATIENT
  Age: 41 Year
  Sex: Female

DRUGS (2)
  1. BROMAZEPAM [Suspect]
     Active Substance: BROMAZEPAM
     Indication: ANXIETY
     Dosage: 40 ML, DAILY
     Route: 048
     Dates: start: 20100305, end: 20140505
  2. ALPRAZOLAM (UNKNOWN) [Suspect]
     Active Substance: ALPRAZOLAM
     Indication: ANXIETY
     Dosage: 40 ML, DAILY
     Route: 048
     Dates: start: 20100305, end: 20140505

REACTIONS (2)
  - Overdose [Recovering/Resolving]
  - Drug dependence [Recovering/Resolving]

NARRATIVE: CASE EVENT DATE: 20140505
